FAERS Safety Report 7689389-8 (Version None)
Quarter: 2011Q3

REPORT INFORMATION
  Report Type: 
  Country: None (occurrence: None)
  Receive Date: 20110817
  Receipt Date: 20110810
  Transmission Date: 20111222
  Serious: Yes (Death, Life-Threatening)
  Sender: FDA-Public Use
  Company Number: JP-CEPHALON-2011002265

PATIENT
  Sex: Male
  Weight: 47 kg

DRUGS (9)
  1. VALGANCICLOVIR HYDROCHLORIDE (VALCYTE) [Concomitant]
     Dates: start: 20110406, end: 20110521
  2. RITUXIMAB [Concomitant]
     Dates: end: 20110427
  3. PREDNISOLONE [Concomitant]
     Dates: start: 20101202, end: 20110521
  4. FENTANYL CITRATE [Concomitant]
     Dates: start: 20101202, end: 20110527
  5. BENDAMUSTINE HCL [Suspect]
     Indication: B-CELL LYMPHOMA
     Route: 042
     Dates: start: 20110414, end: 20110415
  6. PANTETHINE [Concomitant]
  7. GRANISETRON HYDROCHLORIDE [Concomitant]
  8. URSODIOL [Concomitant]
     Dates: start: 20101202, end: 20110521
  9. ACYCLOVIR [Concomitant]
     Dates: start: 20101202, end: 20110521

REACTIONS (3)
  - FEBRILE NEUTROPENIA [None]
  - B-CELL LYMPHOMA [None]
  - PANCYTOPENIA [None]
